FAERS Safety Report 8969924 (Version 1)
Quarter: 2012Q4

REPORT INFORMATION
  Report Type: 
  Country: US (occurrence: US)
  Receive Date: 20121218
  Receipt Date: 20121218
  Transmission Date: 20130627
  Serious: Yes (Other)
  Sender: FDA-Public Use
  Company Number: US-BRISTOL-MYERS SQUIBB COMPANY-16225823

PATIENT
  Age: 20 Year
  Sex: Female
  Weight: 119.72 kg

DRUGS (1)
  1. ABILIFY [Suspect]
     Dosage: withdrawn -one month ago
     Dates: end: 2011

REACTIONS (1)
  - Tardive dyskinesia [Unknown]
